FAERS Safety Report 22282700 (Version 1)
Quarter: 2023Q2

REPORT INFORMATION
  Report Type: Spontaneous
  Country: US (occurrence: US)
  Receive Date: 20230504
  Receipt Date: 20230504
  Transmission Date: 20230721
  Serious: No
  Sender: FDA-Public Use
  Company Number: US-ELI_LILLY_AND_COMPANY-US202305000366

PATIENT

DRUGS (2)
  1. MOUNJARO [Suspect]
     Active Substance: TIRZEPATIDE
     Indication: Product used for unknown indication
     Dosage: UNK, UNKNOWN
     Route: 065
  2. MOUNJARO [Suspect]
     Active Substance: TIRZEPATIDE
     Indication: Product used for unknown indication
     Dosage: 7.5 MG, UNKNOWN
     Route: 065

REACTIONS (7)
  - Eye swelling [Recovering/Resolving]
  - Eye haemorrhage [Recovered/Resolved]
  - Ocular icterus [Recovering/Resolving]
  - Weight decreased [Unknown]
  - Anxiety [Unknown]
  - Abdominal discomfort [Recovered/Resolved]
  - Crying [Unknown]
